FAERS Safety Report 8984586 (Version 2)
Quarter: 2013Q1

REPORT INFORMATION
  Report Type: Report from Study
  Country: ES (occurrence: ES)
  Receive Date: 20121226
  Receipt Date: 20130212
  Transmission Date: 20140127
  Serious: Yes (Life-Threatening, Hospitalization, Other)
  Sender: FDA-Public Use
  Company Number: ES-MPIJNJ-2012-08844

PATIENT
  Sex: 0

DRUGS (21)
  1. VELCADE [Suspect]
     Indication: PLASMA CELL MYELOMA
     Dosage: 1.3 MG/M2, UNK
     Route: 042
     Dates: start: 20121119, end: 20121205
  2. RAPAMYCIN [Suspect]
     Indication: PLASMA CELL MYELOMA
     Dosage: 6 MG, UNK
     Route: 048
  3. RAPAMYCIN [Suspect]
     Dosage: 4 UNK, UNK
  4. TACROLIMUS [Suspect]
     Indication: PLASMA CELL MYELOMA
     Dosage: 0.03 MG/KG, UNK
     Route: 042
  5. FLUDARABINE [Concomitant]
     Dosage: 30 MG/M2, UNK
     Route: 042
  6. MELPHALAN [Concomitant]
     Dosage: 140 MG, UNK
     Route: 042
  7. PHYTOMENADIONE [Concomitant]
  8. FOLINIC ACID [Concomitant]
  9. MAGNESIUM SULPHATE                 /00167401/ [Concomitant]
  10. PARACETAMOL [Concomitant]
  11. CODEINE [Concomitant]
  12. DEXCHLORPHENIRAMINE [Concomitant]
  13. PIPERACILLIN W/TAZOBACTAM [Concomitant]
  14. METAMIZOL                          /06276702/ [Concomitant]
  15. LORAZEPAM [Concomitant]
  16. ONDANSETRON [Concomitant]
  17. METOCLOPRAMIDE [Concomitant]
  18. NISTATIN [Concomitant]
  19. LOPERAMIDE [Concomitant]
  20. ACICLOVIR [Concomitant]
  21. FUROSEMIDE [Concomitant]

REACTIONS (3)
  - Bronchospasm [Not Recovered/Not Resolved]
  - Microangiopathy [Not Recovered/Not Resolved]
  - Gastrointestinal haemorrhage [Recovered/Resolved]
